FAERS Safety Report 25817783 (Version 1)
Quarter: 2025Q3

REPORT INFORMATION
  Report Type: Spontaneous
  Country: CN (occurrence: CN)
  Receive Date: 20250918
  Receipt Date: 20250918
  Transmission Date: 20251021
  Serious: Yes (Hospitalization, Other)
  Sender: INVENTIA HEALTHCARE LTD
  Company Number: CN-IHL-000683

PATIENT
  Age: 58 Year
  Sex: Female

DRUGS (3)
  1. ACIPIMOX [Suspect]
     Active Substance: ACIPIMOX
     Indication: Lipid management
     Route: 048
  2. ATORVASTATIN [Suspect]
     Active Substance: ATORVASTATIN
     Indication: Lipid management
     Route: 048
  3. TELMISARTAN [Suspect]
     Active Substance: TELMISARTAN
     Indication: Hypertension
     Route: 048

REACTIONS (2)
  - Drug interaction [Recovered/Resolved]
  - Drug-induced liver injury [Recovered/Resolved]
